FAERS Safety Report 19520625 (Version 1)
Quarter: 2021Q3

REPORT INFORMATION
  Report Type: Spontaneous
  Country: US (occurrence: US)
  Receive Date: 20210712
  Receipt Date: 20210712
  Transmission Date: 20211014
  Serious: No
  Sender: FDA-Public Use
  Company Number: US-BAYER-2021-168451

PATIENT

DRUGS (1)
  1. MIRALAX [Suspect]
     Active Substance: POLYETHYLENE GLYCOL 3350
     Indication: GASTROINTESTINAL DISORDER PROPHYLAXIS
     Route: 048

REACTIONS (3)
  - Abnormal faeces [Unknown]
  - Gastrointestinal motility disorder [Unknown]
  - Gastric disorder [Unknown]
